FAERS Safety Report 24392190 (Version 1)
Quarter: 2024Q4

REPORT INFORMATION
  Report Type: Spontaneous
  Country: US (occurrence: None)
  Receive Date: 20241002
  Receipt Date: 20241002
  Transmission Date: 20250114
  Serious: Yes (unspecified)
  Sender: Public
  Company Number: None

PATIENT
  Age: 47 Year
  Sex: Male
  Weight: 127.7 kg

DRUGS (3)
  1. AMITRIPTYLINE [Suspect]
     Active Substance: AMITRIPTYLINE
     Indication: Sleep disorder
     Dates: start: 20240917, end: 20240919
  2. TRAZODONE [Concomitant]
     Active Substance: TRAZODONE HYDROCHLORIDE
     Dates: end: 20240904
  3. DULOXETINE [Concomitant]
     Active Substance: DULOXETINE
     Dates: start: 20240201

REACTIONS (1)
  - Priapism [None]

NARRATIVE: CASE EVENT DATE: 20240919
